FAERS Safety Report 10097969 (Version 1)
Quarter: 2014Q2

REPORT INFORMATION
  Report Type: Spontaneous
  Country: FR (occurrence: FR)
  Receive Date: 20140423
  Receipt Date: 20140423
  Transmission Date: 20141212
  Serious: Yes (Hospitalization)
  Sender: FDA-Public Use
  Company Number: FR-BRISTOL-MYERS SQUIBB COMPANY-20633574

PATIENT
  Age: 89 Year
  Sex: Female

DRUGS (5)
  1. YERVOY [Suspect]
     Dosage: 09-JAN-2014 29-JAN-2014 20-FEB-2014 13-MAR-2014 .ONE TO FOURTH COUSE DATE.
     Route: 042
     Dates: start: 20140109, end: 20140313
  2. INNOHEP [Concomitant]
  3. BISOPROLOL [Concomitant]
  4. FUROSEMIDE [Concomitant]
  5. POTASSIUM CHLORIDE [Concomitant]

REACTIONS (3)
  - Blood thyroid stimulating hormone decreased [Not Recovered/Not Resolved]
  - Arthralgia [Not Recovered/Not Resolved]
  - Hypophysitis [Not Recovered/Not Resolved]
